FAERS Safety Report 12501760 (Version 3)
Quarter: 2023Q1

REPORT INFORMATION
  Report Type: Spontaneous
  Country: JP (occurrence: JP)
  Receive Date: 20160627
  Receipt Date: 20230308
  Transmission Date: 20230418
  Serious: Yes (Hospitalization)
  Sender: FDA-Public Use
  Company Number: JP-BAYER-2016-124161

PATIENT
  Age: 57 Year
  Sex: Female

DRUGS (3)
  1. GADOBUTROL [Suspect]
     Active Substance: GADOBUTROL
     Dosage: 1 DF, ONCE
     Dates: start: 20160617, end: 20160617
  2. IOPAMIRON [Suspect]
     Active Substance: IOPAMIDOL
     Indication: Computerised tomogram
     Dosage: 100 ML, ONCE
     Route: 041
     Dates: start: 20160617, end: 20160617
  3. IOPAMIRON [Suspect]
     Active Substance: IOPAMIDOL
     Indication: Acoustic neuroma

REACTIONS (4)
  - Pulmonary oedema [Recovered/Resolved]
  - Feeling abnormal [Recovered/Resolved]
  - Oxygen saturation decreased [Recovered/Resolved]
  - Blood pressure decreased [Recovered/Resolved]

NARRATIVE: CASE EVENT DATE: 20160617
